FAERS Safety Report 15945225 (Version 2)
Quarter: 2019Q1

REPORT INFORMATION
  Report Type: Report from Study
  Country: IN (occurrence: IN)
  Receive Date: 20190211
  Receipt Date: 20190213
  Transmission Date: 20190417
  Serious: Yes (Death, Hospitalization, Other)
  Sender: FDA-Public Use
  Company Number: IN-SA-2019SA036180

PATIENT
  Age: 75 Year
  Sex: Male
  Weight: 60 kg

DRUGS (2)
  1. INSULIN GLARGINE [Suspect]
     Active Substance: INSULIN GLARGINE
     Dosage: 16 U, UNK
     Route: 058
  2. INSULIN GLARGINE [Suspect]
     Active Substance: INSULIN GLARGINE
     Indication: DIABETES MELLITUS
     Dosage: 14 U, UNK
     Route: 058
     Dates: start: 20181023

REACTIONS (4)
  - Glycosylated haemoglobin increased [Unknown]
  - Blood pressure increased [Fatal]
  - Blood glucose increased [Unknown]
  - Haematemesis [Unknown]

NARRATIVE: CASE EVENT DATE: 20181023
